FAERS Safety Report 6896182-2 (Version None)
Quarter: 2010Q3

REPORT INFORMATION
  Report Type: 
  Country: None (occurrence: None)
  Receive Date: 20100802
  Receipt Date: 20100722
  Transmission Date: 20110219
  Serious: Yes (Hospitalization)
  Sender: FDA-Public Use
  Company Number: A0867513A

PATIENT
  Age: 84 Year
  Sex: Male

DRUGS (12)
  1. AVANDIA [Suspect]
     Dates: start: 20061004
  2. ZOCOR [Concomitant]
  3. PROSCAR [Concomitant]
  4. ASPIRIN [Concomitant]
  5. ZOLOFT [Concomitant]
  6. ATENOLOL [Concomitant]
  7. CARDURA [Concomitant]
  8. VALSARTAN [Concomitant]
  9. HYDROCHLOROTHIAZIDE SPIRONOLACTONE [Concomitant]
  10. FLUNISOLIDE [Concomitant]
  11. TROSPIUM CHLORIDE [Concomitant]
  12. COLACE [Concomitant]

REACTIONS (3)
  - CARDIAC FAILURE CONGESTIVE [None]
  - CEREBROVASCULAR ACCIDENT [None]
  - CONVULSION [None]
